FAERS Safety Report 7402005-5 (Version None)
Quarter: 2011Q2

REPORT INFORMATION
  Report Type: 
  Country: None (occurrence: None)
  Receive Date: 20110408
  Receipt Date: 20110405
  Transmission Date: 20111010
  Serious: Yes (Other)
  Sender: FDA-Public Use
  Company Number: US-PFIZER INC-2011075537

PATIENT
  Sex: Female

DRUGS (3)
  1. TEGRETOL [Concomitant]
     Dosage: UNK
  2. XANAX [Suspect]
     Indication: FEELING OF RELAXATION
     Dosage: 2.5 MG, UNK
     Dates: start: 20110301, end: 20110405
  3. OXYMORPHONE [Concomitant]
     Dosage: UNK

REACTIONS (6)
  - DISORIENTATION [None]
  - ASTHENIA [None]
  - SEDATION [None]
  - OVERDOSE [None]
  - CONFUSIONAL STATE [None]
  - FATIGUE [None]
